FAERS Safety Report 9414823 (Version 2)
Quarter: 2013Q3

REPORT INFORMATION
  Report Type: Spontaneous
  Country: US (occurrence: None)
  Receive Date: 20130718
  Receipt Date: 20130729
  Transmission Date: 20140515
  Serious: Yes (Other)
  Sender: FDA-Public Use
  Company Number: SYM-2013-06207

PATIENT
  Sex: Female

DRUGS (1)
  1. DIAZEPAM [Suspect]
     Indication: CONVULSION

REACTIONS (6)
  - Convulsion [None]
  - Condition aggravated [None]
  - Drug ineffective [None]
  - Therapeutic response unexpected with drug substitution [None]
  - Product substitution issue [None]
  - Tremor [None]
